FAERS Safety Report 8335221-9 (Version None)
Quarter: 2012Q2

REPORT INFORMATION
  Report Type: 
  Country: None (occurrence: None)
  Receive Date: 20120503
  Receipt Date: 20120501
  Transmission Date: 20120825
  Serious: Yes (Life-Threatening, Hospitalization, Disabling)
  Sender: FDA-Public Use
  Company Number: NZ-B.I. PHARMACEUTICALS,INC./RIDGEFIELD-2012-AU-00522AU

PATIENT
  Sex: Male
  Weight: 80 kg

DRUGS (4)
  1. DIGOXIN [Concomitant]
     Dosage: 125 MCG
  2. PRADAXA [Suspect]
     Indication: ATRIAL FIBRILLATION
     Dosage: 220 MG
     Dates: end: 20120221
  3. ACCUPRIL [Concomitant]
     Dosage: 40 MG
  4. FUROSEMIDE [Concomitant]
     Dosage: 80 MG

REACTIONS (5)
  - ISCHAEMIC STROKE [None]
  - DYSPHAGIA [None]
  - MOBILITY DECREASED [None]
  - SKIN GRAFT [None]
  - APHASIA [None]
